FAERS Safety Report 8615331-9 (Version None)
Quarter: 2012Q3

REPORT INFORMATION
  Report Type: 
  Country: None (occurrence: None)
  Receive Date: 20120823
  Receipt Date: 20120815
  Transmission Date: 20120928
  Serious: Yes (Hospitalization, Other)
  Sender: FDA-Public Use
  Company Number: US-ABBOTT-12P-163-0928052-00

PATIENT
  Sex: Male
  Weight: 90.8 kg

DRUGS (3)
  1. HUMIRA [Suspect]
     Indication: PSORIASIS
     Route: 058
     Dates: start: 20080401, end: 20120730
  2. UNKNOWN MEDICATION [Concomitant]
     Indication: BLOOD CHOLESTEROL INCREASED
  3. UNKNOWN MEDICATION [Concomitant]
     Indication: HYPERTENSION

REACTIONS (13)
  - SPUTUM DISCOLOURED [None]
  - SINUSITIS [None]
  - NASOPHARYNGITIS [None]
  - SWELLING FACE [None]
  - WEIGHT DECREASED [None]
  - HAEMOPTYSIS [None]
  - LUNG DISORDER [None]
  - PULMONARY EMBOLISM [None]
  - OEDEMA PERIPHERAL [None]
  - BLOOD GLUCOSE INCREASED [None]
  - BRONCHITIS [None]
  - PNEUMONIA [None]
  - ATRIAL FIBRILLATION [None]
